FAERS Safety Report 11855163 (Version 1)
Quarter: 2015Q4

REPORT INFORMATION
  Report Type: Spontaneous
  Country: ES (occurrence: ES)
  Receive Date: 20151221
  Receipt Date: 20151221
  Transmission Date: 20160305
  Serious: Yes (Hospitalization, Other)
  Sender: FDA-Public Use
  Company Number: ES-WATSON-2015-13982

PATIENT
  Age: 55 Year
  Sex: Female

DRUGS (3)
  1. METHOTREXATE (METHOTREXATE SODIUM) [Interacting]
     Active Substance: METHOTREXATE SODIUM
     Indication: MYCOSIS FUNGOIDES
     Dosage: 20 MG/W
     Route: 065
  2. TRIMETHOPRIM-SULFAMETHOXAZOLE (UNKNOWN) [Suspect]
     Active Substance: SULFAMETHOXAZOLE\TRIMETHOPRIM
     Indication: SEPSIS
     Dosage: 160/ 800 MG THREE TIMES A WEEK
     Route: 065
  3. TRIMETHOPRIM-SULFAMETHOXAZOLE (UNKNOWN) [Interacting]
     Active Substance: SULFAMETHOXAZOLE\TRIMETHOPRIM
     Indication: PROPHYLAXIS

REACTIONS (4)
  - Bone marrow failure [Recovered/Resolved]
  - Bicytopenia [Recovered/Resolved]
  - Skin erosion [Recovered/Resolved]
  - Drug interaction [Recovered/Resolved]
